FAERS Safety Report 9797467 (Version 2)
Quarter: 2014Q1

REPORT INFORMATION
  Report Type: Report from Study
  Country: TR (occurrence: TR)
  Receive Date: 20140106
  Receipt Date: 20140110
  Transmission Date: 20141002
  Serious: Yes (Hospitalization)
  Sender: FDA-Public Use
  Company Number: PHHY2013TR153213

PATIENT
  Age: 47 Year
  Sex: Male

DRUGS (1)
  1. SANDOSTATIN LAR [Suspect]
     Indication: NEUROENDOCRINE TUMOUR
     Dosage: 30 MG, ONCE EVERY 28 DAYS
     Route: 030
     Dates: start: 20130805, end: 20131028

REACTIONS (4)
  - Paralysis [Unknown]
  - Coma [Unknown]
  - Loss of consciousness [Unknown]
  - Hypertension [Unknown]
